FAERS Safety Report 25937427 (Version 2)
Quarter: 2025Q4

REPORT INFORMATION
  Report Type: Report from Study
  Country: US (occurrence: US)
  Receive Date: 20251018
  Receipt Date: 20251119
  Transmission Date: 20260117
  Serious: Yes (Death)
  Sender: ABBVIE
  Company Number: US-ABBVIE-6507860

PATIENT
  Age: 58 Year
  Sex: Male

DRUGS (1)
  1. HUMIRA [Suspect]
     Active Substance: ADALIMUMAB
     Indication: Crohn^s disease
     Dosage: CITRATE-FREE HUMIRA 40MG/0.4ML
     Route: 058

REACTIONS (4)
  - Renal disorder [Fatal]
  - Dementia [Fatal]
  - Liver disorder [Fatal]
  - Starvation [Unknown]

NARRATIVE: CASE EVENT DATE: 20150101
